FAERS Safety Report 4790197-6 (Version None)
Quarter: 2005Q4

REPORT INFORMATION
  Report Type: 
  Country: None (occurrence: None)
  Receive Date: 20051005
  Receipt Date: 20051005
  Transmission Date: 20060501
  Serious: Yes (Hospitalization)
  Sender: FDA-Public Use
  Company Number: None

PATIENT
  Sex: Female
  Weight: 45.5 kg

DRUGS (4)
  1. ZIPRAZIDONE 160 MG [Suspect]
     Indication: SCHIZOPHRENIA
     Dosage: 160 MG PO BID
     Route: 048
  2. DEPAKOTE [Concomitant]
  3. VENTOLIN [Concomitant]
  4. CLONAZEPAM [Concomitant]

REACTIONS (2)
  - DROOLING [None]
  - SWOLLEN TONGUE [None]
